FAERS Safety Report 7346358-5 (Version None)
Quarter: 2011Q1

REPORT INFORMATION
  Report Type: 
  Country: None (occurrence: None)
  Receive Date: 20110311
  Receipt Date: 20100127
  Transmission Date: 20110831
  Serious: No
  Sender: FDA-Public Use
  Company Number: US-BAYER-201012947NA

PATIENT
  Sex: Female

DRUGS (1)
  1. MIRENA [Suspect]
     Indication: CONTRACEPTION
     Dosage: 20 ?G/D, CONT
     Route: 015
     Dates: start: 20090301

REACTIONS (5)
  - PROCEDURAL PAIN [None]
  - PENILE PAIN [None]
  - MENORRHAGIA [None]
  - LIBIDO DECREASED [None]
  - DYSPAREUNIA [None]
